FAERS Safety Report 25615338 (Version 1)
Quarter: 2025Q3

REPORT INFORMATION
  Report Type: Spontaneous
  Country: US (occurrence: US)
  Receive Date: 20250729
  Receipt Date: 20250729
  Transmission Date: 20251020
  Serious: No
  Sender: ASTELLAS
  Company Number: US-ASTELLAS-2025-AER-039258

PATIENT
  Age: 70 Year
  Sex: Female

DRUGS (1)
  1. MYRBETRIQ [Suspect]
     Active Substance: MIRABEGRON
     Indication: Hypertonic bladder
     Dosage: 25MG, ONCE DAILY
     Route: 065
     Dates: start: 20250707

REACTIONS (11)
  - Dizziness [Unknown]
  - Nausea [Unknown]
  - Gastrooesophageal reflux disease [Unknown]
  - Eructation [Unknown]
  - Chest pain [Unknown]
  - Pain in extremity [Unknown]
  - Back pain [Unknown]
  - Dyspnoea [Recovered/Resolved]
  - Headache [Unknown]
  - Vomiting [Unknown]
  - Dizziness postural [Unknown]

NARRATIVE: CASE EVENT DATE: 20250101
